FAERS Safety Report 23098543 (Version 1)
Quarter: 2023Q4

REPORT INFORMATION
  Report Type: Report from Study
  Country: CA (occurrence: CA)
  Receive Date: 20231023
  Receipt Date: 20231023
  Transmission Date: 20240110
  Serious: Yes (Other)
  Sender: FDA-Public Use
  Company Number: CA-VER-202300440

PATIENT
  Age: 66 Year
  Sex: Male

DRUGS (2)
  1. TRIPTORELIN PAMOATE [Suspect]
     Active Substance: TRIPTORELIN PAMOATE
     Indication: Prostate cancer
     Dosage: ONCE / 6 MONTHS (22.5 MG,6 M)
     Route: 030
     Dates: start: 20230928, end: 20230928
  2. TRIPTORELIN PAMOATE [Suspect]
     Active Substance: TRIPTORELIN PAMOATE
     Indication: Prostate cancer
     Dosage: ??22.5 MILLIGRAM, ONCE / 6 MONTHS (22.5 MG,6 M)
     Route: 030
     Dates: start: 20230328, end: 20230328

REACTIONS (8)
  - Nasopharyngitis [Unknown]
  - Malaise [Unknown]
  - Influenza [Unknown]
  - Pollakiuria [Unknown]
  - Body temperature increased [Unknown]
  - Dysuria [Unknown]
  - Micturition urgency [Unknown]
  - Fatigue [Unknown]
